FAERS Safety Report 25873884 (Version 1)
Quarter: 2025Q4

REPORT INFORMATION
  Report Type: Spontaneous
  Country: GB (occurrence: GB)
  Receive Date: 20251002
  Receipt Date: 20251002
  Transmission Date: 20260118
  Serious: Yes (Other)
  Sender: RANBAXY
  Company Number: GB-SUN PHARMACEUTICAL INDUSTRIES LTD-2025RR-528622

PATIENT
  Age: 41 Year
  Sex: Female

DRUGS (5)
  1. PIPERACILLIN SODIUM\TAZOBACTAM SODIUM [Suspect]
     Active Substance: PIPERACILLIN SODIUM\TAZOBACTAM SODIUM
     Indication: Intracranial infection
     Dosage: UNK
     Route: 042
  2. MEROPENEM [Suspect]
     Active Substance: MEROPENEM
     Indication: Colitis
     Dosage: 500 MILLIGRAM EVERY 6 HOURS
     Route: 065
  3. MEROPENEM [Suspect]
     Active Substance: MEROPENEM
     Dosage: 2 GRAM EVERY 8 HOURS
     Route: 065
  4. CEFTRIAXONE [Suspect]
     Active Substance: CEFTRIAXONE
     Indication: Intracranial infection
     Dosage: 2 GRAM EVERY 12 HOURS
     Route: 042
  5. METRONIDAZOLE [Suspect]
     Active Substance: METRONIDAZOLE
     Indication: Liver abscess
     Dosage: 400 MILLIGRAM EVERY 8 HOURS FOR 5 DAYS
     Route: 048

REACTIONS (6)
  - Colitis [Recovering/Resolving]
  - Disease progression [Recovering/Resolving]
  - Leukopenia [Recovering/Resolving]
  - Acute kidney injury [Recovering/Resolving]
  - Encephalopathy [Recovering/Resolving]
  - Drug ineffective [Recovering/Resolving]
